FAERS Safety Report 12263127 (Version 1)
Quarter: 2016Q2

REPORT INFORMATION
  Report Type: Spontaneous
  Country: US (occurrence: US)
  Receive Date: 20160413
  Receipt Date: 20160413
  Transmission Date: 20160815
  Serious: No
  Sender: FDA-Public Use
  Company Number: US-MDT-ADR-2016-00470

PATIENT
  Age: 25 Year
  Sex: Male

DRUGS (2)
  1. DANTROLINE [Suspect]
     Active Substance: DANTROLENE
  2. LIORESAL [Suspect]
     Active Substance: BACLOFEN
     Dosage: 227 MCG/DAY
     Route: 037

REACTIONS (2)
  - Muscle spasms [Unknown]
  - Haemorrhoids [Unknown]

NARRATIVE: CASE EVENT DATE: 20160226
